FAERS Safety Report 4861101-7 (Version None)
Quarter: 2005Q4

REPORT INFORMATION
  Report Type: 
  Country: None (occurrence: None)
  Receive Date: 20051220
  Receipt Date: 20051214
  Transmission Date: 20060501
  Serious: Yes (Hospitalization)
  Sender: FDA-Public Use
  Company Number: FR-GLAXOSMITHKLINE-B0403995A

PATIENT
  Age: 80 Year
  Sex: Male

DRUGS (8)
  1. AUGMENTIN [Suspect]
     Dosage: 1G THREE TIMES PER DAY
     Route: 048
     Dates: start: 20051123, end: 20051125
  2. EXTENCILLINE [Suspect]
     Dosage: 6IU6 FOUR TIMES PER DAY
     Route: 030
     Dates: start: 20051118, end: 20051122
  3. VENTOLIN [Concomitant]
     Indication: ASTHMA
     Route: 055
  4. ATROVENT [Concomitant]
     Route: 055
  5. CO APROVEL [Concomitant]
  6. PREVISCAN [Concomitant]
  7. HEPARIN [Concomitant]
     Dates: start: 20051118
  8. OXYGEN [Concomitant]
     Dates: start: 20051118

REACTIONS (3)
  - PRURITUS [None]
  - RASH ERYTHEMATOUS [None]
  - RASH MACULAR [None]
